FAERS Safety Report 11391744 (Version 1)
Quarter: 2015Q3

REPORT INFORMATION
  Report Type: Spontaneous
  Country: None (occurrence: None)
  Receive Date: 20150814
  Receipt Date: 20150814
  Transmission Date: 20151125
  Serious: Yes (Other)
  Sender: FDA-Public Use
  Company Number: None

PATIENT
  Age: 7 Year
  Sex: Female
  Weight: 18.14 kg

DRUGS (3)
  1. VYVANSE [Suspect]
     Active Substance: LISDEXAMFETAMINE DIMESYLATE
     Indication: ATTENTION DEFICIT/HYPERACTIVITY DISORDER
     Dosage: 1PILL
     Route: 048
     Dates: start: 20150301, end: 20150322
  2. CHILDREN^S MULTI-VITAMIN [Concomitant]
  3. CHILDREN^S OMEGA 3 [Concomitant]

REACTIONS (1)
  - Tic [None]

NARRATIVE: CASE EVENT DATE: 20150322
